FAERS Safety Report 9880928 (Version 6)
Quarter: 2014Q1

REPORT INFORMATION
  Report Type: Spontaneous
  Country: US (occurrence: US)
  Receive Date: 20140207
  Receipt Date: 20140311
  Transmission Date: 20141002
  Serious: Yes (Other)
  Sender: FDA-Public Use
  Company Number: US-PFIZER INC-2014035362

PATIENT
  Age: 71 Year
  Sex: Male
  Weight: 49.89 kg

DRUGS (6)
  1. LYRICA [Suspect]
     Indication: PARKINSON^S DISEASE
     Dosage: 75 MG, 3X/DAY
     Route: 048
     Dates: start: 20140127
  2. LYRICA [Interacting]
     Indication: NEUROPATHY PERIPHERAL
     Dosage: 150 MG, DAILY (BEFORE BED TIME)
     Dates: start: 201402
  3. LYRICA [Interacting]
     Dosage: 75 MG, 1X/DAY
  4. LYRICA [Interacting]
     Dosage: 25 MG, UNK
     Dates: end: 20140221
  5. SINEMET [Interacting]
     Indication: PARKINSON^S DISEASE
     Dosage: 2 DF, 5X/DAY
     Dates: start: 2012
  6. SINEMET [Interacting]
     Dosage: CARBIDOPA 25/ LEVODOPA 100 (Q4H)

REACTIONS (16)
  - Off label use [Unknown]
  - Drug interaction [Unknown]
  - Gait disturbance [Unknown]
  - Hypersensitivity [Unknown]
  - Rash macular [Unknown]
  - Clumsiness [Unknown]
  - Balance disorder [Unknown]
  - Platelet count decreased [Unknown]
  - Contusion [Unknown]
  - Dry mouth [Unknown]
  - Dizziness [Unknown]
  - Local swelling [Unknown]
  - Product packaging issue [Unknown]
  - Ataxia [Unknown]
  - Pruritus [Unknown]
  - Insomnia [Unknown]
